FAERS Safety Report 4943251-X (Version None)
Quarter: 2006Q1

REPORT INFORMATION
  Report Type: 
  Country: None (occurrence: None)
  Receive Date: 20060314
  Receipt Date: 20060303
  Transmission Date: 20060701
  Serious: Yes (Other)
  Sender: FDA-Public Use
  Company Number: JP-ROCHE-438660

PATIENT
  Age: 31 Year
  Sex: Female

DRUGS (2)
  1. HORIZON [Suspect]
     Route: 065
  2. PHENYTOIN [Concomitant]

REACTIONS (1)
  - HEPATIC FAILURE [None]
